FAERS Safety Report 7822338-8 (Version None)
Quarter: 2011Q4

REPORT INFORMATION
  Report Type: 
  Country: None (occurrence: None)
  Receive Date: 20111018
  Receipt Date: 20100827
  Transmission Date: 20120403
  Serious: No
  Sender: FDA-Public Use
  Company Number: US-ASTRAZENECA-2010SE40513

PATIENT
  Sex: Female

DRUGS (11)
  1. SYMBICORT [Suspect]
     Indication: ASTHMA
     Dosage: 160-4.5 MCG BID
     Route: 055
     Dates: start: 20090101
  2. CALCIUM AND MAGNESIUM [Concomitant]
  3. LEVOXYL [Concomitant]
  4. DILTIAZEM HCL [Concomitant]
  5. VITAMIN D [Concomitant]
  6. THYROID TAB [Concomitant]
  7. KENALOG [Concomitant]
  8. SYMBICORT [Suspect]
     Indication: CHRONIC OBSTRUCTIVE PULMONARY DISEASE
     Dosage: 160-4.5 MCG BID
     Route: 055
     Dates: start: 20090101
  9. PHENERGAN HCL [Concomitant]
  10. AMINOPHYLLIN TAB [Concomitant]
  11. LENOXIN [Concomitant]

REACTIONS (1)
  - DYSPNOEA [None]
